FAERS Safety Report 5729260-1 (Version None)
Quarter: 2008Q2

REPORT INFORMATION
  Report Type: 
  Country: None (occurrence: None)
  Receive Date: 20080506
  Receipt Date: 20080417
  Transmission Date: 20081010
  Serious: Yes (Other)
  Sender: FDA-Public Use
  Company Number: JP-NOVOPROD-274166

PATIENT
  Sex: Female
  Weight: 54 kg

DRUGS (3)
  1. INNOLET R CHU [Suspect]
     Indication: TYPE 1 DIABETES MELLITUS
     Route: 058
  2. INNOLET N CHU [Suspect]
     Indication: TYPE 1 DIABETES MELLITUS
     Route: 058
  3. INNOLET N CHU [Suspect]

REACTIONS (1)
  - AMENORRHOEA [None]
